FAERS Safety Report 24820551 (Version 1)
Quarter: 2025Q1

REPORT INFORMATION
  Report Type: Spontaneous
  Country: PL (occurrence: PL)
  Receive Date: 20250108
  Receipt Date: 20250108
  Transmission Date: 20250409
  Serious: Yes (Hospitalization, Other)
  Sender: NOVARTIS
  Company Number: PL-002147023-NVSC2025PL002216

PATIENT
  Age: 66 Year
  Sex: Male

DRUGS (2)
  1. DABRAFENIB [Suspect]
     Active Substance: DABRAFENIB
     Indication: Malignant melanoma
     Route: 065
     Dates: start: 20230413
  2. TRAMETINIB [Suspect]
     Active Substance: TRAMETINIB
     Indication: Malignant melanoma
     Route: 065
     Dates: start: 20230413

REACTIONS (5)
  - Anaemia [Recovered/Resolved]
  - Orchitis [Unknown]
  - Skin necrosis [Unknown]
  - Fistula [Unknown]
  - Purulent discharge [Unknown]

NARRATIVE: CASE EVENT DATE: 20230601
